FAERS Safety Report 9490781 (Version 2)
Quarter: 2013Q3

REPORT INFORMATION
  Report Type: Report from Study
  Country: BE (occurrence: BE)
  Receive Date: 20130830
  Receipt Date: 20130830
  Transmission Date: 20140515
  Serious: Yes (Hospitalization, Other)
  Sender: FDA-Public Use
  Company Number: BE-BAYER-2013-077259

PATIENT
  Age: 78 Year
  Sex: Male

DRUGS (6)
  1. NEXAVAR [Suspect]
     Indication: HEPATOCELLULAR CARCINOMA
     Dosage: 800 MG/DAY
     Dates: start: 20130602, end: 20130618
  2. NEXAVAR [Suspect]
     Indication: HEPATOCELLULAR CARCINOMA
     Dosage: 600 MG/DAY
     Dates: start: 20130619, end: 20130819
  3. INDERAL [Concomitant]
     Dosage: 160 MG, QD
  4. ALDACTONE [SPIRONOLACTONE] [Concomitant]
     Dosage: 100 MG, UNK
  5. PANTOPRAZOLE SODIUM [Concomitant]
     Dosage: 40 MG, QD
  6. LASIX [Concomitant]
     Dosage: 40 MG, QD

REACTIONS (6)
  - Tumour marker increased [None]
  - Ascites [None]
  - Liver function test abnormal [None]
  - Weight decreased [None]
  - Decreased appetite [None]
  - Dysphonia [None]
